FAERS Safety Report 26119491 (Version 2)
Quarter: 2025Q4

REPORT INFORMATION
  Report Type: Spontaneous
  Country: US (occurrence: US)
  Receive Date: 20251204
  Receipt Date: 20251205
  Transmission Date: 20260118
  Serious: No
  Sender: Haleon PLC
  Company Number: US-HALEON-2277543

PATIENT
  Sex: Female

DRUGS (1)
  1. ABREVA [Suspect]
     Active Substance: DOCOSANOL
     Indication: Oral herpes
     Dosage: I USED IT ABOUT FIVE TIMES
     Dates: start: 20251201, end: 20251202

REACTIONS (2)
  - Oral herpes [Unknown]
  - Condition aggravated [Unknown]
